FAERS Safety Report 5507749-8 (Version None)
Quarter: 2007Q4

REPORT INFORMATION
  Report Type: 
  Country: None (occurrence: None)
  Receive Date: 20071106
  Receipt Date: 20071030
  Transmission Date: 20080405
  Serious: Yes (Hospitalization, Other)
  Sender: FDA-Public Use
  Company Number: US-JNJFOC-20071007463

PATIENT
  Sex: Female
  Weight: 98.43 kg

DRUGS (3)
  1. REMICADE [Suspect]
     Indication: CROHN'S DISEASE
     Route: 042
  2. REMICADE [Suspect]
     Indication: ENTEROCUTANEOUS FISTULA
     Route: 042
  3. 6MP [Concomitant]

REACTIONS (4)
  - ABDOMINAL PAIN UPPER [None]
  - HAEMATURIA [None]
  - SPLENOMEGALY [None]
  - THROMBOCYTOPENIA [None]
